FAERS Safety Report 12507102 (Version 1)
Quarter: 2016Q2

REPORT INFORMATION
  Report Type: Spontaneous
  Country: US (occurrence: US)
  Receive Date: 20160629
  Receipt Date: 20160629
  Transmission Date: 20160815
  Serious: No
  Sender: FDA-Public Use
  Company Number: US-TEVA-633036USA

PATIENT
  Sex: Female
  Weight: 72.64 kg

DRUGS (1)
  1. SIMVASTATIN. [Suspect]
     Active Substance: SIMVASTATIN
     Indication: BLOOD CHOLESTEROL ABNORMAL
     Dosage: 80 MILLIGRAM DAILY;
     Route: 065

REACTIONS (3)
  - Malaise [Unknown]
  - Intentional product misuse [Unknown]
  - Drug ineffective [Unknown]
